FAERS Safety Report 22625547 (Version 1)
Quarter: 2023Q2

REPORT INFORMATION
  Report Type: Spontaneous
  Country: AT (occurrence: AT)
  Receive Date: 20230621
  Receipt Date: 20230621
  Transmission Date: 20230721
  Serious: Yes (Hospitalization, Other)
  Sender: FDA-Public Use
  Company Number: AT-BRISTOL-MYERS SQUIBB COMPANY-2023-077627

PATIENT
  Age: 82 Year
  Sex: Female

DRUGS (2)
  1. DEXAMETHASONE [Suspect]
     Active Substance: DEXAMETHASONE
     Indication: Plasma cell myeloma
     Route: 065
  2. REVLIMID [Suspect]
     Active Substance: LENALIDOMIDE
     Indication: Plasma cell myeloma
     Dosage: FREQ: 1X DAILY
     Dates: start: 20200323, end: 202201

REACTIONS (7)
  - Pancytopenia [None]
  - Renal impairment [None]
  - Renal failure [None]
  - Plasma cell myeloma [None]
  - Osteolysis [None]
  - Anaemia [None]
  - Hypercalcaemia [None]

NARRATIVE: CASE EVENT DATE: 20210901
